FAERS Safety Report 9736672 (Version 2)
Quarter: 2015Q3

REPORT INFORMATION
  Report Type: Spontaneous
  Country: US (occurrence: US)
  Receive Date: 20131206
  Receipt Date: 20150804
  Transmission Date: 20151125
  Serious: No
  Sender: FDA-Public Use
  Company Number: US-GILEAD-2009-0023285

PATIENT
  Age: 64 Year
  Sex: Female
  Weight: 70.31 kg

DRUGS (8)
  1. CALCIUM [Concomitant]
     Active Substance: CALCIUM
  2. SCHIFF MOVE FREE [Concomitant]
     Active Substance: CHONDROITIN SULFATE A\GLUCOSAMINE
  3. LORAZEPAM. [Concomitant]
     Active Substance: LORAZEPAM
  4. HYDROCHLOROTHIAZIDE. [Concomitant]
     Active Substance: HYDROCHLOROTHIAZIDE
  5. ASPIRIN. [Concomitant]
     Active Substance: ASPIRIN
  6. MAGNESIUM [Concomitant]
     Active Substance: MAGNESIUM
  7. LETAIRIS [Suspect]
     Active Substance: AMBRISENTAN
     Indication: PULMONARY ARTERIAL HYPERTENSION
     Route: 048
     Dates: start: 20090609
  8. ATENOLOL. [Concomitant]
     Active Substance: ATENOLOL

REACTIONS (2)
  - Pain [Unknown]
  - Arthralgia [Unknown]
